FAERS Safety Report 7641153-1 (Version None)
Quarter: 2011Q3

REPORT INFORMATION
  Report Type: 
  Country: None (occurrence: None)
  Receive Date: 20110728
  Receipt Date: 20110615
  Transmission Date: 20111222
  Serious: Yes (Other)
  Sender: FDA-Public Use
  Company Number: JP-SANOFI-AVENTIS-2011SA040431

PATIENT
  Age: 68 Year
  Sex: Male

DRUGS (3)
  1. CONIEL [Concomitant]
     Route: 048
     Dates: start: 20110614
  2. ZOLPIDEM [Suspect]
     Route: 048
     Dates: start: 20110614, end: 20110614
  3. CANDESARTAN CILEXETIL [Concomitant]
     Route: 048
     Dates: start: 20110614

REACTIONS (3)
  - MEMORY IMPAIRMENT [None]
  - ENURESIS [None]
  - ALCOHOL INTERACTION [None]
